FAERS Safety Report 11803606 (Version 2)
Quarter: 2020Q1

REPORT INFORMATION
  Report Type: Spontaneous
  Country: US (occurrence: US)
  Receive Date: 20151204
  Receipt Date: 20200331
  Transmission Date: 20200409
  Serious: Yes (Death, Hospitalization, Other)
  Sender: FDA-Public Use
  Company Number: US-009507513-1512USA002506

PATIENT
  Sex: Male
  Weight: 72.56 kg

DRUGS (1)
  1. JANUMET XR [Suspect]
     Active Substance: METFORMIN HYDROCHLORIDE\SITAGLIPTIN PHOSPHATE
     Indication: TYPE 2 DIABETES MELLITUS
     Dosage: 1 TABLET (50/1000 MG) TWICE DAILY
     Route: 048
     Dates: start: 20130420, end: 201309

REACTIONS (23)
  - Septic shock [Unknown]
  - Febrile neutropenia [Unknown]
  - Hepatic encephalopathy [Unknown]
  - Shock [Unknown]
  - Acute kidney injury [Not Recovered/Not Resolved]
  - Gastritis [Unknown]
  - Urinary tract infection [Unknown]
  - Pleural effusion [Unknown]
  - Oral candidiasis [Unknown]
  - Pancreatic carcinoma metastatic [Fatal]
  - Hepatic necrosis [Unknown]
  - Hypotension [Unknown]
  - Mucosal inflammation [Unknown]
  - Metastases to liver [Unknown]
  - Breast cancer metastatic [Unknown]
  - Atelectasis [Unknown]
  - Dyspnoea [Unknown]
  - Sepsis [Unknown]
  - Neutropenic sepsis [Unknown]
  - Diabetes mellitus inadequate control [Unknown]
  - Neutropenia [Unknown]
  - Pancytopenia [Unknown]
  - Haemoptysis [Unknown]

NARRATIVE: CASE EVENT DATE: 2013
